FAERS Safety Report 7760811-1 (Version None)
Quarter: 2011Q3

REPORT INFORMATION
  Report Type: 
  Country: None (occurrence: None)
  Receive Date: 20110919
  Receipt Date: 20110909
  Transmission Date: 20111222
  Serious: Yes (Other)
  Sender: FDA-Public Use
  Company Number: US-ASTRAZENECA-2011SE54266

PATIENT
  Age: 48 Year
  Sex: Male
  Weight: 91.2 kg

DRUGS (4)
  1. HIDROCODONE [Concomitant]
  2. CRESTOR [Suspect]
     Route: 048
  3. AMOXCICILLIN [Concomitant]
  4. OMEPRAZOLE [Concomitant]
     Route: 048

REACTIONS (1)
  - LIP NEOPLASM [None]
